FAERS Safety Report 13004194 (Version 4)
Quarter: 2017Q1

REPORT INFORMATION
  Report Type: Report from Study
  Country: TR (occurrence: TR)
  Receive Date: 20161206
  Receipt Date: 20170208
  Transmission Date: 20170428
  Serious: Yes (Other)
  Sender: FDA-Public Use
  Company Number: TR-ALEXION PHARMACEUTICALS INC.-A201609570

PATIENT
  Age: 24 Day
  Sex: Male
  Weight: 3.49 kg

DRUGS (6)
  1. VANCOMYCIN [Concomitant]
     Active Substance: VANCOMYCIN
     Dosage: 3 X 10 MG/KG
     Route: 042
     Dates: start: 20161217
  2. PHENOBARBITAL. [Concomitant]
     Active Substance: PHENOBARBITAL
     Indication: CONVULSION NEONATAL
     Dosage: 4 MG/KG/DAY, UNK
     Route: 042
     Dates: start: 20161105
  3. AMIKACIN [Concomitant]
     Active Substance: AMIKACIN
     Indication: SEPSIS NEONATAL
     Dosage: 5 MG/KG, QD
     Route: 042
     Dates: start: 20161123, end: 20161129
  4. VANCOMYCIN [Concomitant]
     Active Substance: VANCOMYCIN
     Indication: SEPSIS NEONATAL
     Dosage: 3 X 10MG
     Route: 042
     Dates: start: 20161123
  5. ENB-0040 [Suspect]
     Active Substance: ASFOTASE ALFA
     Indication: HYPOPHOSPHATASIA
     Dosage: 2 MG/KG, TIW
     Route: 058
     Dates: start: 20161124
  6. AMIKACIN [Concomitant]
     Active Substance: AMIKACIN
     Dosage: 1 X 5 MG/KG
     Route: 042
     Dates: start: 20161217

REACTIONS (5)
  - Dyspnoea [Recovering/Resolving]
  - Hyperhidrosis [Not Recovered/Not Resolved]
  - Oxygen saturation decreased [Recovered/Resolved]
  - Hyperhidrosis [Recovering/Resolving]
  - Respiratory distress [Unknown]

NARRATIVE: CASE EVENT DATE: 20161128
